FAERS Safety Report 20034290 (Version 1)
Quarter: 2021Q4

REPORT INFORMATION
  Report Type: Spontaneous
  Country: TR (occurrence: DE)
  Receive Date: 20211104
  Receipt Date: 20211104
  Transmission Date: 20220303
  Serious: Yes (Other)
  Sender: FDA-Public Use
  Company Number: TR-JNJFOC-20211061636

PATIENT
  Age: 15 Month
  Sex: Male
  Weight: 6.5 kg

DRUGS (1)
  1. REMICADE [Suspect]
     Active Substance: INFLIXIMAB
     Indication: Inflammatory bowel disease
     Route: 042

REACTIONS (5)
  - Stem cell transplant [Unknown]
  - Pneumonia [Recovering/Resolving]
  - Weight increased [Unknown]
  - Off label use [Unknown]
  - Product use issue [Unknown]
